FAERS Safety Report 20737234 (Version 1)
Quarter: 2022Q2

REPORT INFORMATION
  Report Type: Spontaneous
  Country: None (occurrence: US)
  Receive Date: 20220421
  Receipt Date: 20220421
  Transmission Date: 20220720
  Serious: Yes (Other)
  Sender: FDA-Public Use
  Company Number: US-MLV Pharma LLC-2128006

PATIENT
  Age: 81 Year
  Sex: Female

DRUGS (2)
  1. LISINOPRIL [Suspect]
     Active Substance: LISINOPRIL
     Indication: Hypertension
     Route: 065
  2. TICAGRELOR [Interacting]
     Active Substance: TICAGRELOR
     Route: 065

REACTIONS (4)
  - Swelling face [Recovered/Resolved]
  - Drug interaction [Unknown]
  - Angioedema [Recovered/Resolved]
  - Angioedema [Recovered/Resolved]
